FAERS Safety Report 7994204-9 (Version None)
Quarter: 2011Q4

REPORT INFORMATION
  Report Type: 
  Country: None (occurrence: None)
  Receive Date: 20111220
  Receipt Date: 20110503
  Transmission Date: 20120403
  Serious: No
  Sender: FDA-Public Use
  Company Number: US-GLAXOSMITHKLINE-A0926632A

PATIENT
  Sex: Female

DRUGS (7)
  1. METOPROLOL [Concomitant]
  2. ASPIRIN [Concomitant]
  3. RYTHMOL [Suspect]
     Indication: ATRIAL FIBRILLATION
     Route: 048
  4. COUMADIN [Concomitant]
  5. QUINAPRIL [Concomitant]
  6. LORAZEPAM [Concomitant]
  7. CRESTOR [Concomitant]

REACTIONS (1)
  - HEART RATE INCREASED [None]
